FAERS Safety Report 6535606-7 (Version None)
Quarter: 2010Q1

REPORT INFORMATION
  Report Type: 
  Country: None (occurrence: None)
  Receive Date: 20100113
  Receipt Date: 20091225
  Transmission Date: 20100710
  Serious: Yes (Other)
  Sender: FDA-Public Use
  Company Number: JP-BAYER-200915070BYL

PATIENT
  Age: 82 Year
  Sex: Male
  Weight: 65 kg

DRUGS (8)
  1. AVELOX [Suspect]
     Indication: PNEUMONIA
     Dosage: UNIT DOSE: 400 MG
     Route: 048
     Dates: start: 20091127, end: 20091130
  2. INTEBAN [Suspect]
     Indication: PNEUMONIA
     Route: 054
     Dates: start: 20091127
  3. DAONIL [Concomitant]
     Route: 048
  4. ARICEPT [Concomitant]
     Route: 048
  5. PURSENNID [Concomitant]
     Route: 048
  6. METHYCOBAL [Concomitant]
     Route: 048
  7. FIRSTCIN KIT-S [Concomitant]
     Dosage: UNIT DOSE: 1 G
     Route: 042
     Dates: start: 20091207
  8. AMIKACIN SULFATE [Concomitant]
     Route: 042
     Dates: start: 20091201, end: 20091201

REACTIONS (2)
  - ECZEMA [None]
  - HAEMATOCHEZIA [None]
